FAERS Safety Report 25341048 (Version 1)
Quarter: 2025Q2

REPORT INFORMATION
  Report Type: Spontaneous
  Country: US (occurrence: None)
  Receive Date: 20250520
  Receipt Date: 20250520
  Transmission Date: 20250716
  Serious: Yes (Hospitalization)
  Sender: FDA-CTU
  Company Number: None

PATIENT
  Sex: Female
  Weight: 100.35 kg

DRUGS (3)
  1. WINREVAIR [Suspect]
     Active Substance: SOTATERCEPT-CSRK
     Indication: Pulmonary arterial hypertension
     Route: 058
     Dates: start: 20240821
  2. OFEV [Suspect]
     Active Substance: NINTEDANIB
  3. TYVASO [Suspect]
     Active Substance: TREPROSTINIL

REACTIONS (1)
  - Oxygen saturation decreased [None]
